FAERS Safety Report 22322892 (Version 2)
Quarter: 2025Q2

REPORT INFORMATION
  Report Type: Other
  Country: GB (occurrence: GB)
  Receive Date: 20230516
  Receipt Date: 20250513
  Transmission Date: 20250717
  Serious: Yes (Hospitalization, Other)
  Sender: ASPEN
  Company Number: GB-PFIZER INC-PV202300055967

PATIENT

DRUGS (2)
  1. DEXAMETHASONE SODIUM PHOSPHATE [Suspect]
     Active Substance: DEXAMETHASONE SODIUM PHOSPHATE
     Indication: Plasma cell myeloma
     Dosage: 40 MG, WEEKLY
     Route: 048
     Dates: start: 202011
  2. FLUTICASONE PROPIONATE\SALMETEROL XINAFOATE [Concomitant]
     Active Substance: FLUTICASONE PROPIONATE\SALMETEROL XINAFOATE
     Indication: Asthma
     Route: 065

REACTIONS (23)
  - Off label use [Unknown]
  - Drug ineffective [Unknown]
  - Pneumonia [Unknown]
  - Infection [Unknown]
  - Full blood count decreased [Unknown]
  - Pulmonary embolism [Unknown]
  - Syncope [Unknown]
  - Epistaxis [Unknown]
  - Cataract [Unknown]
  - Atrial fibrillation [Unknown]
  - Loss of consciousness [Unknown]
  - Neuropathy peripheral [Unknown]
  - Sinusitis [Unknown]
  - Fungal infection [Unknown]
  - Anxiety [Unknown]
  - Mental impairment [Unknown]
  - Dyspnoea [Unknown]
  - Neutrophil count decreased [Unknown]
  - Psychiatric symptom [Unknown]
  - Insomnia [Unknown]
  - Mental disorder [Unknown]
  - Alopecia [Unknown]
  - Muscular weakness [Unknown]

NARRATIVE: CASE EVENT DATE: 20201101
